FAERS Safety Report 24892712 (Version 1)
Quarter: 2025Q1

REPORT INFORMATION
  Report Type: Report from Study
  Country: US (occurrence: US)
  Receive Date: 20250128
  Receipt Date: 20250128
  Transmission Date: 20250409
  Serious: Yes (Other)
  Sender: ALEXION PHARMACEUTICALS
  Company Number: US-AstraZeneca-CH-00793285A

PATIENT

DRUGS (1)
  1. ALBUTEROL\BUDESONIDE [Suspect]
     Active Substance: ALBUTEROL\BUDESONIDE
     Route: 065

REACTIONS (3)
  - Pneumonia [Unknown]
  - SARS-CoV-2 test negative [Unknown]
  - Respiratory syncytial virus test negative [Unknown]
